FAERS Safety Report 16084004 (Version 1)
Quarter: 2019Q2

REPORT INFORMATION
  Report Type: Spontaneous
  Country: US (occurrence: US)
  Receive Date: 20190316
  Receipt Date: 20190316
  Transmission Date: 20190711
  Serious: Yes (Other)
  Sender: FDA-Public Use
  Company Number: None

PATIENT
  Age: 43 Year
  Sex: Female
  Weight: 89.55 kg

DRUGS (2)
  1. MARIJUANA [Concomitant]
     Active Substance: CANNABIS SATIVA SUBSP. INDICA TOP
  2. LEVAQUIN [Suspect]
     Active Substance: LEVOFLOXACIN
     Indication: ESCHERICHIA INFECTION
     Route: 048
     Dates: start: 20190215, end: 20190223

REACTIONS (5)
  - Weight bearing difficulty [None]
  - Pain [None]
  - Arthralgia [None]
  - Joint swelling [None]
  - Gait disturbance [None]

NARRATIVE: CASE EVENT DATE: 20190221
